FAERS Safety Report 24637452 (Version 3)
Quarter: 2025Q3

REPORT INFORMATION
  Report Type: Spontaneous
  Country: JP (occurrence: JP)
  Receive Date: 20241119
  Receipt Date: 20250810
  Transmission Date: 20251021
  Serious: Yes (Death, Hospitalization, Other)
  Sender: ALEXION PHARMACEUTICALS
  Company Number: JP-ASTRAZENECA-240127321_032620_P_1

PATIENT
  Age: 60 Year
  Sex: Female
  Weight: 69 kg

DRUGS (41)
  1. FASENRA [Suspect]
     Active Substance: BENRALIZUMAB
     Dosage: 30 MILLIGRAM, Q4W
     Dates: start: 20190627, end: 20221208
  2. METGLUCO [Concomitant]
     Active Substance: METFORMIN HYDROCHLORIDE
     Indication: Diabetes mellitus
  3. METGLUCO [Concomitant]
     Active Substance: METFORMIN HYDROCHLORIDE
  4. METGLUCO [Concomitant]
     Active Substance: METFORMIN HYDROCHLORIDE
  5. METGLUCO [Concomitant]
     Active Substance: METFORMIN HYDROCHLORIDE
  6. METGLUCO [Concomitant]
     Active Substance: METFORMIN HYDROCHLORIDE
  7. LIVALO [Concomitant]
     Active Substance: PITAVASTATIN CALCIUM
     Dosage: 1 MILLIGRAM, QD
  8. LIVALO [Concomitant]
     Active Substance: PITAVASTATIN CALCIUM
     Indication: Dyslipidaemia
     Dosage: 1 MILLIGRAM, QD
  9. LIVALO [Concomitant]
     Active Substance: PITAVASTATIN CALCIUM
     Dosage: 1 MILLIGRAM, QD
  10. LIVALO [Concomitant]
     Active Substance: PITAVASTATIN CALCIUM
  11. LIVALO [Concomitant]
     Active Substance: PITAVASTATIN CALCIUM
  12. FEBUXOSTAT [Concomitant]
     Active Substance: FEBUXOSTAT
  13. FEBUXOSTAT [Concomitant]
     Active Substance: FEBUXOSTAT
     Indication: Hyperuricaemia
     Dosage: 20 MILLIGRAM, BID
  14. FEBUXOSTAT [Concomitant]
     Active Substance: FEBUXOSTAT
     Dosage: 20 MILLIGRAM, BID
  15. FEBUXOSTAT [Concomitant]
     Active Substance: FEBUXOSTAT
  16. FEBUXOSTAT [Concomitant]
     Active Substance: FEBUXOSTAT
  17. THEO-DUR [Concomitant]
     Active Substance: THEOPHYLLINE ANHYDROUS
     Dates: start: 20120530
  18. THEO-DUR [Concomitant]
     Active Substance: THEOPHYLLINE ANHYDROUS
     Indication: Asthma
  19. SINGULAIR [Concomitant]
     Active Substance: MONTELUKAST SODIUM
     Dates: start: 20120530
  20. SINGULAIR [Concomitant]
     Active Substance: MONTELUKAST SODIUM
     Indication: Asthma
  21. ERYTHROCIN [Concomitant]
     Active Substance: ERYTHROMYCIN LACTOBIONATE
     Dates: start: 20130925
  22. ERYTHROCIN [Concomitant]
     Active Substance: ERYTHROMYCIN LACTOBIONATE
     Indication: Asthma
  23. LANSOPRAZOLE [Concomitant]
     Active Substance: LANSOPRAZOLE
  24. LANSOPRAZOLE [Concomitant]
     Active Substance: LANSOPRAZOLE
     Indication: Peptic ulcer
  25. LANSOPRAZOLE [Concomitant]
     Active Substance: LANSOPRAZOLE
  26. LANSOPRAZOLE [Concomitant]
     Active Substance: LANSOPRAZOLE
  27. LANSOPRAZOLE [Concomitant]
     Active Substance: LANSOPRAZOLE
  28. BONALON [Concomitant]
     Active Substance: ALENDRONATE SODIUM
     Indication: Osteoporosis
  29. LASIX [Concomitant]
     Active Substance: FUROSEMIDE
  30. LASIX [Concomitant]
     Active Substance: FUROSEMIDE
     Indication: Oedema
  31. LASIX [Concomitant]
     Active Substance: FUROSEMIDE
  32. LASIX [Concomitant]
     Active Substance: FUROSEMIDE
  33. LASIX [Concomitant]
     Active Substance: FUROSEMIDE
  34. PREDONINE [Concomitant]
     Active Substance: PREDNISOLONE
     Dates: start: 20180329, end: 20190626
  35. PREDONINE [Concomitant]
     Active Substance: PREDNISOLONE
     Indication: Asthma
     Dosage: 5 MILLIGRAM, QD
     Dates: start: 20190627
  36. FLUTIFORM [Concomitant]
     Active Substance: FLUTIFORM
     Dates: start: 20160114
  37. FLUTIFORM [Concomitant]
     Active Substance: FLUTIFORM
     Indication: Asthma
  38. SPIRIVA [Concomitant]
     Active Substance: TIOTROPIUM BROMIDE MONOHYDRATE
     Dates: start: 20140501
  39. SPIRIVA [Concomitant]
     Active Substance: TIOTROPIUM BROMIDE MONOHYDRATE
     Indication: Asthma
  40. BONALON [Concomitant]
     Active Substance: ALENDRONATE SODIUM
     Indication: Osteoporosis
  41. BONALON [Concomitant]
     Active Substance: ALENDRONATE SODIUM

REACTIONS (1)
  - Rectal cancer [Fatal]

NARRATIVE: CASE EVENT DATE: 20220221
